FAERS Safety Report 13855083 (Version 1)
Quarter: 2017Q3

REPORT INFORMATION
  Report Type: Report from Study
  Country: FR (occurrence: FR)
  Receive Date: 20170810
  Receipt Date: 20170810
  Transmission Date: 20171127
  Serious: Yes (Hospitalization)
  Sender: FDA-Public Use
  Company Number: PHHO2017FR010099

PATIENT
  Age: 70 Year
  Sex: Male
  Weight: 82 kg

DRUGS (9)
  1. AZACITIDINE. [Suspect]
     Active Substance: AZACITIDINE
     Dosage: 75 MG/M2, UNK
     Route: 058
     Dates: start: 20170626
  2. MAGNE B6 [Concomitant]
     Active Substance: MAGNESIUM\PYRIDOXINE
     Indication: PRODUCT USED FOR UNKNOWN INDICATION
     Dosage: 1 DF, QD (1 TABLET)
     Route: 048
  3. LDE 225 [Suspect]
     Active Substance: ERISMODEGIB
     Indication: MYELODYSPLASTIC SYNDROME
     Dosage: 400 MG, UNK
     Route: 048
     Dates: start: 20170529, end: 20170701
  4. LDE 225 [Suspect]
     Active Substance: ERISMODEGIB
     Dosage: 400 MG, UNK
     Route: 048
     Dates: start: 20170724
  5. EXJADE [Concomitant]
     Active Substance: DEFERASIROX
     Indication: CHELATION THERAPY
     Dosage: 1500 MG, QD
     Route: 048
  6. AZACITIDINE. [Suspect]
     Active Substance: AZACITIDINE
     Indication: MYELODYSPLASTIC SYNDROME
     Dosage: 75 MG/M2, UNK
     Route: 058
     Dates: start: 20170529, end: 20170602
  7. LANTUS [Concomitant]
     Active Substance: INSULIN GLARGINE
     Indication: DISSOCIATIVE IDENTITY DISORDER
     Dosage: 56 IU/D
     Route: 058
  8. RAMIPRIL. [Concomitant]
     Active Substance: RAMIPRIL
     Indication: HYPERTENSION
     Dosage: 10 MG, QD
     Route: 048
  9. ZELITREX [Concomitant]
     Active Substance: VALACYCLOVIR HYDROCHLORIDE
     Indication: PROPHYLAXIS
     Dosage: 1000 MG, QD
     Route: 048

REACTIONS (2)
  - Febrile bone marrow aplasia [Recovering/Resolving]
  - Sepsis [Recovering/Resolving]

NARRATIVE: CASE EVENT DATE: 20170702
